FAERS Safety Report 24190858 (Version 1)
Quarter: 2024Q3

REPORT INFORMATION
  Report Type: Spontaneous
  Country: US (occurrence: None)
  Receive Date: 20240808
  Receipt Date: 20240808
  Transmission Date: 20241017
  Serious: Yes (Other)
  Sender: Public
  Company Number: None

PATIENT
  Age: 69 Year
  Sex: Female

DRUGS (1)
  1. STELARA [Suspect]
     Active Substance: USTEKINUMAB
     Indication: Crohn^s disease
     Dosage: OTHER FREQUENCY : Q8 WEEKS;?
     Route: 058

REACTIONS (6)
  - Arthritis [None]
  - Fall [None]
  - Anxiety [None]
  - Fatigue [None]
  - Gout [None]
  - Diarrhoea [None]
